FAERS Safety Report 6313620-4 (Version None)
Quarter: 2009Q3

REPORT INFORMATION
  Report Type: 
  Country: None (occurrence: None)
  Receive Date: 20090814
  Receipt Date: 20090814
  Transmission Date: 20100115
  Serious: Yes (Other)
  Sender: FDA-Public Use
  Company Number: None

PATIENT
  Sex: Male
  Weight: 48 kg

DRUGS (4)
  1. NUTROPIN AQ [Suspect]
     Indication: BODY HEIGHT BELOW NORMAL
     Dosage: 0.24 MG/KG/WK DAILY SC
     Route: 058
     Dates: start: 20090720, end: 20090804
  2. NUTROPIN AQ [Suspect]
  3. ELAPRASE [Concomitant]
  4. COUMADIN [Concomitant]

REACTIONS (6)
  - DYSPNOEA [None]
  - FATIGUE [None]
  - GRIP STRENGTH DECREASED [None]
  - HEADACHE [None]
  - LACRIMATION INCREASED [None]
  - SENSORY DISTURBANCE [None]
